FAERS Safety Report 20734282 (Version 2)
Quarter: 2022Q2

REPORT INFORMATION
  Report Type: Report from Study
  Country: US (occurrence: US)
  Receive Date: 20220421
  Receipt Date: 20220527
  Transmission Date: 20220721
  Serious: Yes (Hospitalization)
  Sender: FDA-Public Use
  Company Number: US-BoehringerIngelheim-2022-BI-158162

PATIENT
  Sex: Male

DRUGS (2)
  1. OFEV [Suspect]
     Active Substance: NINTEDANIB
     Indication: Idiopathic pulmonary fibrosis
     Route: 048
     Dates: start: 20220219
  2. ELIQUIS [Concomitant]
     Active Substance: APIXABAN

REACTIONS (4)
  - Epistaxis [Not Recovered/Not Resolved]
  - Diarrhoea [Recovered/Resolved]
  - Dysphonia [Not Recovered/Not Resolved]
  - Oesophageal stenosis [Not Recovered/Not Resolved]
